FAERS Safety Report 7472509-8 (Version None)
Quarter: 2011Q2

REPORT INFORMATION
  Report Type: 
  Country: None (occurrence: None)
  Receive Date: 20110502
  Receipt Date: 20110420
  Transmission Date: 20111010
  Serious: Yes (Other)
  Sender: FDA-Public Use
  Company Number: LEO-2011-00358

PATIENT
  Age: 37 Year
  Sex: Male
  Weight: 91 kg

DRUGS (1)
  1. TACLONEX SCALP [Suspect]
     Indication: PSORIASIS
     Dosage: 100G/WEEK (1 DOSAGE FORMS, 1 IN 1 D), TOPICAL
     Route: 061
     Dates: start: 20110215, end: 20110412

REACTIONS (1)
  - MYELOCYTE PRESENT [None]
